FAERS Safety Report 6528393-X (Version None)
Quarter: 2010Q1

REPORT INFORMATION
  Report Type: 
  Country: None (occurrence: None)
  Receive Date: 20100106
  Receipt Date: 20100104
  Transmission Date: 20100710
  Serious: Yes (Life-Threatening, Hospitalization)
  Sender: FDA-Public Use
  Company Number: A0811599A

PATIENT
  Age: 59 Year
  Sex: Female

DRUGS (11)
  1. ADVAIR DISKUS 100/50 [Suspect]
     Dosage: 1PUFF TWICE PER DAY
     Route: 055
     Dates: start: 20020101
  2. STEROIDS [Suspect]
     Indication: DIAGNOSTIC PROCEDURE
     Route: 065
     Dates: start: 20081001, end: 20081001
  3. PLAVIX [Concomitant]
  4. GLUCOPHAGE [Concomitant]
  5. THEOPHYLLINE [Concomitant]
  6. LIPITOR [Concomitant]
  7. ZOLOFT [Concomitant]
  8. XANAX [Concomitant]
  9. SPIRIVA [Concomitant]
  10. PROVENTIL [Concomitant]
  11. OXYGEN [Concomitant]

REACTIONS (6)
  - DYSPNOEA [None]
  - DYSPNOEA EXERTIONAL [None]
  - HYPERHIDROSIS [None]
  - LUNG NEOPLASM [None]
  - PNEUMONITIS [None]
  - RESPIRATORY ARREST [None]
